FAERS Safety Report 6379470-8 (Version None)
Quarter: 2009Q3

REPORT INFORMATION
  Report Type: 
  Country: None (occurrence: None)
  Receive Date: 20090928
  Receipt Date: 20090921
  Transmission Date: 20100115
  Serious: Yes (Hospitalization)
  Sender: FDA-Public Use
  Company Number: B0594238A

PATIENT
  Sex: Female

DRUGS (12)
  1. CLAMOXYL [Suspect]
     Dosage: 1G TWICE PER DAY
     Route: 048
     Dates: end: 20090816
  2. PREVISCAN [Suspect]
     Indication: ATRIAL FIBRILLATION
     Dosage: .5UNIT PER DAY
     Route: 048
     Dates: end: 20090816
  3. LASILIX [Concomitant]
     Indication: HYPERTENSION
     Dosage: 20MG PER DAY
     Route: 048
  4. DIFFU K [Concomitant]
     Dosage: 1UNIT TWICE PER DAY
     Route: 048
     Dates: end: 20090816
  5. FUMAFER [Concomitant]
     Dosage: 1UNIT TWICE PER DAY
     Route: 048
     Dates: end: 20090816
  6. TRIATEC [Concomitant]
     Indication: HYPERTENSION
     Dosage: 2.5MG TWICE PER DAY
     Route: 048
     Dates: end: 20090816
  7. PARIET [Concomitant]
     Dosage: 10MG PER DAY
     Route: 048
     Dates: end: 20090816
  8. ALENDRONIC ACID [Concomitant]
     Indication: OSTEOPOROSIS
     Dosage: 1UNIT WEEKLY
     Route: 048
     Dates: end: 20090816
  9. COLECALCIFEROL [Concomitant]
     Indication: OSTEOPOROSIS
     Dosage: 1UNIT WEEKLY
     Route: 048
     Dates: end: 20090816
  10. CALCIDOSE VIT D [Concomitant]
     Indication: OSTEOPOROSIS
     Dosage: 1UNIT PER DAY
     Route: 048
     Dates: end: 20090816
  11. LANTUS [Concomitant]
     Dosage: 16UNIT IN THE MORNING
  12. NOVORAPID [Concomitant]
     Dosage: 4UNIT PER DAY

REACTIONS (11)
  - ASTHENIA [None]
  - DECREASED APPETITE [None]
  - DIVERTICULUM GASTRIC [None]
  - DIVERTICULUM INTESTINAL [None]
  - DRUG INTERACTION [None]
  - HEART SOUNDS ABNORMAL [None]
  - INTERNATIONAL NORMALISED RATIO INCREASED [None]
  - MELAENA [None]
  - PALLOR [None]
  - RECTAL HAEMORRHAGE [None]
  - SMALL INTESTINE CARCINOMA [None]
